FAERS Safety Report 8447280-3 (Version None)
Quarter: 2012Q2

REPORT INFORMATION
  Report Type: 
  Country: None (occurrence: None)
  Receive Date: 20120612
  Receipt Date: 20120604
  Transmission Date: 20120825
  Serious: Yes (Hospitalization)
  Sender: FDA-Public Use
  Company Number: 2012SP030447

PATIENT
  Age: 22 Year
  Sex: Female
  Weight: 48 kg

DRUGS (9)
  1. PREDNISOLONE [Concomitant]
  2. MEDICON [Concomitant]
  3. PEG-INTRON [Suspect]
     Indication: HEPATITIS C
     Dosage: 1.67 MCG/KG;QW;SC
     Route: 058
     Dates: start: 20120403
  4. TELAVIC (ANTIVIRALS NOS) [Suspect]
     Indication: HEPATITIS C
     Dosage: 1500 MG;QD;PO
     Route: 048
     Dates: start: 20120403
  5. ANTEBATE [Concomitant]
  6. REBETOL [Suspect]
     Indication: HEPATITIS C
     Dosage: 600 MG;QD;PO
     Route: 048
     Dates: start: 20120403
  7. ALLEGRA [Concomitant]
  8. RESPLEN [Concomitant]
  9. ZANTAC [Concomitant]

REACTIONS (3)
  - RASH [None]
  - PRURITUS [None]
  - COUGH [None]
